FAERS Safety Report 15639780 (Version 2)
Quarter: 2018Q4

REPORT INFORMATION
  Report Type: Spontaneous
  Country: JP (occurrence: JP)
  Receive Date: 20181120
  Receipt Date: 20181217
  Transmission Date: 20190205
  Serious: Yes (Hospitalization, Other)
  Sender: FDA-Public Use
  Company Number: JP-SA-2018SA301547

PATIENT
  Age: 83 Year
  Sex: Male

DRUGS (3)
  1. G LASTA [Concomitant]
     Active Substance: PEGFILGRASTIM
     Indication: PRODUCT USED FOR UNKNOWN INDICATION
     Dosage: UNK
     Route: 065
     Dates: start: 20180906, end: 20180926
  2. JEVTANA [Suspect]
     Active Substance: CABAZITAXEL
     Indication: PROSTATE CANCER
     Dosage: 20 MG/M2 (ONLY 1ST CYCLE), 17.5 MG/M2 (2ND AND 3RD CYCLES), Q3W
     Route: 041
     Dates: start: 20180904, end: 20181016
  3. NEUTROGIN [Concomitant]
     Active Substance: LENOGRASTIM
     Indication: PRODUCT USED FOR UNKNOWN INDICATION
     Dosage: ADMINISTERED DURING 3RD CYCLE (DAY 5)
     Route: 065

REACTIONS (3)
  - Neutrophil count decreased [Recovered/Resolved]
  - PO2 decreased [Recovering/Resolving]
  - Interstitial lung disease [Recovering/Resolving]

NARRATIVE: CASE EVENT DATE: 20180911
